FAERS Safety Report 9334173 (Version 1)
Quarter: 2013Q2

REPORT INFORMATION
  Report Type: Spontaneous
  Country: US (occurrence: US)
  Receive Date: 20130606
  Receipt Date: 20130606
  Transmission Date: 20140414
  Serious: No
  Sender: FDA-Public Use
  Company Number: US-AMGEN-USASP2013011392

PATIENT
  Age: 75 Year
  Sex: Female

DRUGS (9)
  1. PROLIA [Suspect]
     Indication: OSTEOPOROSIS
     Dosage: UNK
     Dates: start: 201205
  2. CORTISONE [Concomitant]
     Dosage: UNK
  3. DILTIAZEM [Concomitant]
     Dosage: UNK
  4. METOPROLOL [Concomitant]
     Dosage: UNK
  5. CALCIUM [Concomitant]
     Dosage: UNK
  6. VITAMIN D                          /00107901/ [Concomitant]
     Dosage: UNK
  7. ASPIRIN [Concomitant]
     Dosage: UNK
  8. HYDROCHLOROTHIAZIDE [Concomitant]
     Dosage: UNK
  9. FLORINEF [Concomitant]
     Dosage: UNK

REACTIONS (2)
  - Tooth fracture [Unknown]
  - Cystitis [Unknown]
